FAERS Safety Report 8314673-4 (Version None)
Quarter: 2012Q2

REPORT INFORMATION
  Report Type: 
  Country: None (occurrence: None)
  Receive Date: 20120426
  Receipt Date: 20120413
  Transmission Date: 20120825
  Serious: Yes (Other)
  Sender: FDA-Public Use
  Company Number: US-ELI_LILLY_AND_COMPANY-US201202003449

PATIENT
  Sex: Male
  Weight: 86.168 kg

DRUGS (2)
  1. CYMBALTA [Suspect]
     Indication: DEPRESSION
     Dosage: 30 MG, BID
     Route: 048
  2. CYMBALTA [Suspect]
     Dosage: UNK, UNKNOWN
     Route: 048
     Dates: end: 20120229

REACTIONS (1)
  - BLISTER [None]
